FAERS Safety Report 6179223-X (Version None)
Quarter: 2009Q2

REPORT INFORMATION
  Report Type: 
  Country: None (occurrence: None)
  Receive Date: 20090505
  Receipt Date: 20090403
  Transmission Date: 20091009
  Serious: No
  Sender: FDA-Public Use
  Company Number: US-BAYER-200913332NA

PATIENT
  Age: 35 Year
  Sex: Female
  Weight: 73 kg

DRUGS (4)
  1. YAZ [Suspect]
     Indication: CONTRACEPTION
     Route: 048
     Dates: start: 20081201, end: 20090206
  2. WELLBUTRIN [Concomitant]
     Indication: DEPRESSION
  3. ABILIFY [Concomitant]
     Indication: DEPRESSION
     Dates: end: 20090206
  4. ATATLOL [Concomitant]
     Indication: DEPRESSION

REACTIONS (3)
  - BLOOD CHOLESTEROL INCREASED [None]
  - BLOOD TRIGLYCERIDES INCREASED [None]
  - FATIGUE [None]
